FAERS Safety Report 15675021 (Version 1)
Quarter: 2018Q4

REPORT INFORMATION
  Report Type: Report from Study
  Country: IT (occurrence: IT)
  Receive Date: 20181130
  Receipt Date: 20181130
  Transmission Date: 20190205
  Serious: Yes (Other)
  Sender: FDA-Public Use
  Company Number: IT-ROCHE-2219789

PATIENT

DRUGS (7)
  1. LEDIPASVIR [Suspect]
     Active Substance: LEDIPASVIR
     Indication: CHRONIC HEPATITIS C
     Route: 065
  2. RIBAVIRIN. [Suspect]
     Active Substance: RIBAVIRIN
     Indication: CHRONIC HEPATITIS C
     Route: 065
  3. OMBITASVIR/PARITAPREVIR/RITONAVIR [Suspect]
     Active Substance: OMBITASVIR\PARITAPREVIR\RITONAVIR
     Indication: CHRONIC HEPATITIS C
     Route: 065
  4. DACLATASVIR. [Suspect]
     Active Substance: DACLATASVIR
     Indication: CHRONIC HEPATITIS C
     Route: 065
  5. DASABUVIR [Suspect]
     Active Substance: DASABUVIR
     Indication: CHRONIC HEPATITIS C
     Route: 065
  6. SIMEPREVIR [Suspect]
     Active Substance: SIMEPREVIR
     Indication: CHRONIC HEPATITIS C
     Route: 065
  7. SOFOSBUVIR [Suspect]
     Active Substance: SOFOSBUVIR
     Indication: CHRONIC HEPATITIS C
     Route: 065

REACTIONS (21)
  - Hepatocellular carcinoma [Unknown]
  - Anaemia [Unknown]
  - Hypertension [Unknown]
  - Rash [Unknown]
  - Otitis externa [Unknown]
  - Dizziness [Unknown]
  - Gastrointestinal disorder [Unknown]
  - Urinary tract infection [Unknown]
  - Neuropsychiatric symptoms [Unknown]
  - Pruritus [Unknown]
  - Headache [Unknown]
  - Asthenia [Unknown]
  - Herpes zoster [Unknown]
  - Ascites [Unknown]
  - Influenza like illness [Unknown]
  - Bronchitis [Unknown]
  - Hypertransaminasaemia [Unknown]
  - Musculoskeletal disorder [Unknown]
  - Hyperpyrexia [Unknown]
  - Cough [Unknown]
  - Dyspnoea [Unknown]
